FAERS Safety Report 12099379 (Version 1)
Quarter: 2016Q1

REPORT INFORMATION
  Report Type: Spontaneous
  Country: US (occurrence: US)
  Receive Date: 20160222
  Receipt Date: 20160222
  Transmission Date: 20160526
  Serious: Yes (Other)
  Sender: FDA-Public Use
  Company Number: US-TEVA-579852USA

PATIENT
  Age: 5 Year
  Sex: Male
  Weight: 16.8 kg

DRUGS (2)
  1. AMOXICILLIN. [Suspect]
     Active Substance: AMOXICILLIN
     Indication: PRODUCT USED FOR UNKNOWN INDICATION
     Dosage: 400 MILLIGRAM DAILY; 400 MG/5ML SUSPENSION
     Route: 048
     Dates: start: 20150715, end: 20150715
  2. AMOXICILLIN. [Suspect]
     Active Substance: AMOXICILLIN
     Dosage: 200MG/5ML SUSPENSION (160MG DOSE (4ML))
     Route: 048
     Dates: start: 20150716, end: 20150716

REACTIONS (4)
  - Hypersensitivity [Unknown]
  - Anaphylactic reaction [Unknown]
  - Cough [Unknown]
  - Urticaria [Unknown]

NARRATIVE: CASE EVENT DATE: 201507
